FAERS Safety Report 4640101-6 (Version None)
Quarter: 2005Q2

REPORT INFORMATION
  Report Type: 
  Country: None (occurrence: None)
  Receive Date: 20050411
  Receipt Date: 20050405
  Transmission Date: 20051028
  Serious: Yes (Other)
  Sender: FDA-Public Use
  Company Number: 601855

PATIENT
  Age: 2 Year
  Sex: Male

DRUGS (1)
  1. ADVATE          (ANTIHEMOPHILIC FACTOR) [Suspect]
     Indication: FACTOR VIII DEFICIENCY
     Dosage: 50 IU/KG;TIW

REACTIONS (1)
  - INHIBITING ANTIBODIES [None]
